FAERS Safety Report 9875769 (Version 3)
Quarter: 2014Q1

REPORT INFORMATION
  Report Type: Spontaneous
  Country: CN (occurrence: CN)
  Receive Date: 20140206
  Receipt Date: 20140312
  Transmission Date: 20141002
  Serious: Yes (Death)
  Sender: FDA-Public Use
  Company Number: CN-JNJFOC-20140200553

PATIENT
  Age: 20 Day
  Sex: 0

DRUGS (2)
  1. TYLENOL INFANT DROPS [Suspect]
     Indication: PYREXIA
     Dosage: 0.7ML ONCE
     Route: 048
     Dates: start: 20140131
  2. TYLENOL INFANT DROPS [Suspect]
     Indication: NASOPHARYNGITIS
     Dosage: 0.7ML ONCE
     Route: 048
     Dates: start: 20140131

REACTIONS (1)
  - Death [Fatal]
